FAERS Safety Report 9735230 (Version 1)
Quarter: 2013Q4

REPORT INFORMATION
  Report Type: Spontaneous
  Country: AT (occurrence: AT)
  Receive Date: 20131206
  Receipt Date: 20131206
  Transmission Date: 20140711
  Serious: Yes (Hospitalization, Other)
  Sender: FDA-Public Use
  Company Number: AT-B.I. PHARMACEUTICALS,INC./RIDGEFIELD-2013-BI-40710GD

PATIENT
  Age: 89 Year
  Sex: Female
  Weight: 68 kg

DRUGS (14)
  1. PRADAXA [Suspect]
     Indication: ATRIAL FIBRILLATION
     Dosage: 220 MG
     Dates: start: 201210
  2. PANTOPRAZOLE [Suspect]
     Dosage: 40 MG
  3. DRONEDARONE [Suspect]
     Dosage: 800 MG
  4. LORNOXICAM [Suspect]
     Dosage: 16 MG
  5. FUROSEMIDE [Suspect]
     Dosage: 40 MG
  6. SSRI [Suspect]
  7. NSRI [Suspect]
     Indication: BACK PAIN
  8. LEVOTHYROXINE [Concomitant]
     Indication: HYPOTHYROIDISM
     Dosage: 125 MCG
  9. NICORANDIL [Concomitant]
     Dosage: 20 MG
  10. ATORVASTATIN [Concomitant]
     Dosage: 20 MG
  11. ZOLPIDEM [Concomitant]
     Dosage: 5 MG
  12. MACROGOL [Concomitant]
     Dosage: 13 G
  13. ISOSORBIDE MONONITRATE [Concomitant]
     Dosage: 50 MG
  14. ALPRAZOLAM [Concomitant]
     Dosage: 0.25 MG

REACTIONS (7)
  - Ischaemic stroke [Unknown]
  - Intestinal haemorrhage [Unknown]
  - Vertigo [Unknown]
  - Melaena [Unknown]
  - Haemorrhagic anaemia [Unknown]
  - Hyponatraemia [Recovered/Resolved]
  - Drug interaction [Unknown]
